FAERS Safety Report 16760883 (Version 1)
Quarter: 2019Q3

REPORT INFORMATION
  Report Type: Spontaneous
  Country: US (occurrence: US)
  Receive Date: 20190830
  Receipt Date: 20190830
  Transmission Date: 20191005
  Serious: No
  Sender: FDA-Public Use
  Company Number: US-TAKEDA-2019TUS050210

PATIENT
  Sex: Female

DRUGS (1)
  1. VELCADE [Suspect]
     Active Substance: BORTEZOMIB
     Indication: HAEMOLYTIC ANAEMIA
     Dosage: UNK
     Route: 065

REACTIONS (2)
  - Adverse event [Unknown]
  - Off label use [Unknown]
